FAERS Safety Report 4591663-9 (Version None)
Quarter: 2005Q1

REPORT INFORMATION
  Report Type: 
  Country: None (occurrence: None)
  Receive Date: 20050218
  Receipt Date: 20050210
  Transmission Date: 20050727
  Serious: Yes (Other)
  Sender: FDA-Public Use
  Company Number: 2005028503

PATIENT
  Sex: Female
  Weight: 90.7194 kg

DRUGS (4)
  1. LIPITOR [Suspect]
     Indication: BLOOD CHOLESTEROL INCREASED
     Dosage: 10 MG (10 MG,1 IN 1 D)
  2. PAROXETINE HCL [Suspect]
     Indication: ANXIETY
  3. SOTALOL HCL [Concomitant]
  4. DIGOXIN [Concomitant]

REACTIONS (6)
  - BODY HEIGHT DECREASED [None]
  - DIARRHOEA [None]
  - DOUBLE VESSEL BYPASS GRAFT [None]
  - INCONTINENCE [None]
  - THERAPY NON-RESPONDER [None]
  - WEIGHT DECREASED [None]
